FAERS Safety Report 5331453-2 (Version None)
Quarter: 2007Q2

REPORT INFORMATION
  Report Type: 
  Country: None (occurrence: None)
  Receive Date: 20070522
  Receipt Date: 20070510
  Transmission Date: 20071010
  Serious: Yes (Hospitalization, Other)
  Sender: FDA-Public Use
  Company Number: JP-PFIZER INC-2007034202

PATIENT
  Sex: Male
  Weight: 71 kg

DRUGS (7)
  1. GABAPEN [Suspect]
     Indication: EYE PAIN
     Dosage: DAILY DOSE:1800MG
     Route: 048
  2. TEGRETOL [Suspect]
     Indication: EYE PAIN
     Dosage: DAILY DOSE:300MG
     Route: 048
  3. RIVOTRIL [Suspect]
     Indication: EYE PAIN
     Dosage: DAILY DOSE:3MG
     Route: 048
  4. TRYPTANOL [Suspect]
     Indication: EYE PAIN
     Dosage: DAILY DOSE:10MG
     Route: 048
  5. MYSLEE [Suspect]
     Indication: INSOMNIA
     Dosage: DAILY DOSE:10MG
     Route: 048
  6. GLAKAY [Concomitant]
     Route: 048
  7. PREDNISOLONE [Concomitant]
     Route: 048

REACTIONS (3)
  - ALTERED STATE OF CONSCIOUSNESS [None]
  - CONVULSION [None]
  - MOVEMENT DISORDER [None]
